FAERS Safety Report 17007011 (Version 1)
Quarter: 2019Q4

REPORT INFORMATION
  Report Type: Spontaneous
  Country: US (occurrence: US)
  Receive Date: 20191107
  Receipt Date: 20191107
  Transmission Date: 20200122
  Serious: No
  Sender: FDA-Public Use
  Company Number: US-NEUROCRINE BIOSCIENCES INC.-2019NBI03217

PATIENT
  Sex: Female

DRUGS (3)
  1. INGREZZA [Suspect]
     Active Substance: VALBENAZINE
     Indication: TARDIVE DYSKINESIA
  2. INGREZZA [Suspect]
     Active Substance: VALBENAZINE
     Dates: end: 20191023
  3. INGREZZA [Suspect]
     Active Substance: VALBENAZINE

REACTIONS (1)
  - Parkinsonism [Unknown]
